FAERS Safety Report 19576559 (Version 1)
Quarter: 2021Q3

REPORT INFORMATION
  Report Type: Spontaneous
  Country: LT (occurrence: LT)
  Receive Date: 20210719
  Receipt Date: 20210719
  Transmission Date: 20211014
  Serious: Yes (Hospitalization)
  Sender: FDA-Public Use
  Company Number: LT-GLAXOSMITHKLINE-LT2021EME152257

PATIENT
  Age: 55 Year
  Sex: Female

DRUGS (4)
  1. NUCALA [Suspect]
     Active Substance: MEPOLIZUMAB
     Indication: ASTHMA
     Dosage: 100 MG, Z, (Q 4 WEEKS)
     Route: 058
     Dates: start: 20190403
  2. VERAPAMIL/TRANDOLAPRIL [Concomitant]
     Active Substance: TRANDOLAPRIL\VERAPAMIL
     Indication: PRODUCT USED FOR UNKNOWN INDICATION
     Dosage: UNK, (180MG/2MG)
     Route: 048
  3. MOMETASONE [Concomitant]
     Active Substance: MOMETASONE
     Indication: NASAL POLYPS
     Dosage: UNK
  4. SYMBICORT [Concomitant]
     Active Substance: BUDESONIDE\FORMOTEROL FUMARATE DIHYDRATE
     Indication: ASTHMA
     Dosage: 2 PUFF(S), PRN, (320/9 UG, 2 INH TDS + PRN)
     Route: 055

REACTIONS (1)
  - COVID-19 [Unknown]
